FAERS Safety Report 5575357-9 (Version None)
Quarter: 2007Q4

REPORT INFORMATION
  Report Type: 
  Country: None (occurrence: None)
  Receive Date: 20071130
  Receipt Date: 20070802
  Transmission Date: 20080405
  Serious: No
  Sender: FDA-Public Use
  Company Number: US200708000764

PATIENT
  Age: 61 Year
  Sex: Female

DRUGS (7)
  1. BYETTA [Suspect]
     Indication: TYPE 2 DIABETES MELLITUS
     Dosage: 5 UG, 2/D, SUBCUTANEOUS
     Route: 058
     Dates: start: 20070726
  2. EXTENATIDE 5MCG PEN, DISPOSABLE DEVICE (EXENATIDE PEN (MCG)) PEN,DISPO [Concomitant]
  3. METFORMIN HCL [Concomitant]
  4. LEVEMIR (INSULIN DETEMIR) [Concomitant]
  5. HUMALOG [Concomitant]
  6. ANALGESICS [Concomitant]
  7. LISINOPRIL [Concomitant]

REACTIONS (1)
  - FATIGUE [None]
